FAERS Safety Report 17336172 (Version 1)
Quarter: 2020Q1

REPORT INFORMATION
  Report Type: Spontaneous
  Country: FR (occurrence: FR)
  Receive Date: 20200128
  Receipt Date: 20200128
  Transmission Date: 20200409
  Serious: Yes (Hospitalization)
  Sender: FDA-Public Use
  Company Number: FR-MYLANLABS-2020M1009245

PATIENT
  Age: 66 Year
  Sex: Male

DRUGS (14)
  1. LEVOFLOXACIN. [Suspect]
     Active Substance: LEVOFLOXACIN
     Indication: SEPSIS
     Route: 042
     Dates: start: 20190506
  2. KARDEGIC [Concomitant]
     Active Substance: ASPIRIN DL-LYSINE
     Dosage: 1 DOSAGE FORM, QD
     Route: 048
  3. ALDACTONE [Concomitant]
     Active Substance: SPIRONOLACTONE
     Dosage: 1 DOSAGE FORM, QD
     Route: 048
  4. BECILAN [Concomitant]
     Active Substance: PYRIDOXINE
     Dosage: 2 DOSAGE FORM, QD
     Route: 048
  5. RIFADINE                           /00146901/ [Concomitant]
     Active Substance: RIFAMPIN
     Dosage: 4 DOSAGE FORM, QD
     Route: 048
  6. ECONAZOLE. [Concomitant]
     Active Substance: ECONAZOLE NITRATE
     Dosage: 1 DOSAGE FORM, QD
     Route: 061
  7. CEFAZOLINE                         /00288501/ [Concomitant]
     Active Substance: CEFAZOLIN
     Route: 048
     Dates: start: 20190423
  8. OXYNORMORO [Concomitant]
     Active Substance: OXYCODONE HYDROCHLORIDE
     Dosage: 6 COMPRIMES PAR JOUR SI BESOIN
     Route: 048
  9. ZYMAD [Concomitant]
     Active Substance: CHOLECALCIFEROL
     Dosage: 1 DOSAGE FORM, Q3MONTHS
     Route: 048
  10. PREGABALINE [Concomitant]
     Active Substance: PREGABALIN
     Route: 048
  11. BEVITINE [Concomitant]
     Active Substance: THIAMINE HYDROCHLORIDE
     Dosage: 2 DOSAGE FORM, QD
     Route: 048
  12. LEVOFLOXACIN. [Suspect]
     Active Substance: LEVOFLOXACIN
     Indication: SEPSIS
     Dosage: 1000 MILLIGRAM, QD
     Route: 048
     Dates: start: 20190520, end: 20190527
  13. DUPHALAC [Concomitant]
     Active Substance: LACTULOSE
     Dosage: 3 DOSAGE FORM, QD
     Route: 048
  14. OXYNORMORO [Concomitant]
     Active Substance: OXYCODONE HYDROCHLORIDE
     Dosage: 1 DOSAGE FORM, QD
     Route: 048

REACTIONS (3)
  - Disturbance in attention [Recovered/Resolved]
  - Encephalopathy [Recovered/Resolved]
  - Dyskinesia [Recovered/Resolved]

NARRATIVE: CASE EVENT DATE: 20190527
